FAERS Safety Report 8341092-7 (Version None)
Quarter: 2012Q1

REPORT INFORMATION
  Report Type: 
  Country: None (occurrence: None)
  Receive Date: 20120330
  Receipt Date: 20110503
  Transmission Date: 20120608
  Serious: Yes (Other)
  Sender: FDA-Public Use
  Company Number: PHHY2011US18385

PATIENT
  Sex: Male

DRUGS (7)
  1. OMEGA-3 FATTY ACIDS (OMEGA-3 FATTY ACIDS) [Concomitant]
  2. ASPIRIN [Concomitant]
  3. VITAMIN B12 [Concomitant]
  4. LISINOPRIL [Concomitant]
  5. NIBUTOL (ETHAMBUTOL, ISONIAZID) [Concomitant]
  6. EXELON [Suspect]
     Dosage: 6 MG, BID
     Dates: start: 20030101
  7. SEROQUEL [Concomitant]

REACTIONS (1)
  - MYOCARDIAL INFARCTION [None]
